FAERS Safety Report 20249307 (Version 2)
Quarter: 2022Q1

REPORT INFORMATION
  Report Type: Spontaneous
  Country: IR (occurrence: IR)
  Receive Date: 20211229
  Receipt Date: 20220222
  Transmission Date: 20220423
  Serious: Yes (Hospitalization)
  Sender: FDA-Public Use
  Company Number: IR-GILEAD-2021-0562622

PATIENT
  Age: 52 Year
  Sex: Female

DRUGS (6)
  1. VEKLURY [Suspect]
     Active Substance: REMDESIVIR
     Indication: COVID-19
     Route: 065
  2. DEXAMETHASONE [Concomitant]
     Active Substance: DEXAMETHASONE
  3. HEPARIN [Concomitant]
     Active Substance: HEPARIN SODIUM
  4. INSULIN NOS [Concomitant]
     Active Substance: INSULIN NOS
  5. LEVOTHYROXINE [Concomitant]
     Active Substance: LEVOTHYROXINE
  6. PANTOPRAZOLE [Concomitant]
     Active Substance: PANTOPRAZOLE

REACTIONS (1)
  - Bradycardia [Recovered/Resolved]
